FAERS Safety Report 6386588-2 (Version None)
Quarter: 2009Q4

REPORT INFORMATION
  Report Type: 
  Country: None (occurrence: None)
  Receive Date: 20091002
  Receipt Date: 20090427
  Transmission Date: 20100525
  Serious: Yes (Hospitalization)
  Sender: FDA-Public Use
  Company Number: US-ASTRAZENECA-2009UW10355

PATIENT
  Age: 576 Month
  Sex: Female
  Weight: 55.3 kg

DRUGS (4)
  1. ARIMIDEX [Suspect]
     Indication: BREAST CANCER
     Route: 048
  2. CALCIUM [Concomitant]
     Route: 048
  3. CARVEDILOL [Concomitant]
     Route: 048
  4. OMEPRAZOLE [Concomitant]
     Indication: ULCER
     Route: 048

REACTIONS (2)
  - BRONCHITIS [None]
  - MYALGIA [None]
